FAERS Safety Report 18068774 (Version 2)
Quarter: 2020Q3

REPORT INFORMATION
  Report Type: Spontaneous
  Country: US (occurrence: US)
  Receive Date: 20200725
  Receipt Date: 20200818
  Transmission Date: 20201103
  Serious: No
  Sender: FDA-Public Use
  Company Number: US-BIOGEN-2020BI00900956

PATIENT
  Sex: Female

DRUGS (1)
  1. TECFIDERA [Suspect]
     Active Substance: DIMETHYL FUMARATE
     Indication: MULTIPLE SCLEROSIS
     Route: 065
     Dates: start: 20130413

REACTIONS (6)
  - Product quality issue [Unknown]
  - Somnolence [Unknown]
  - Dyspnoea [Unknown]
  - Initial insomnia [Unknown]
  - Asthenia [Unknown]
  - Dizziness [Unknown]
